FAERS Safety Report 22044630 (Version 3)
Quarter: 2023Q1

REPORT INFORMATION
  Report Type: Report from Study
  Country: US (occurrence: None)
  Receive Date: 20230228
  Receipt Date: 20230315
  Transmission Date: 20230417
  Serious: Yes (Hospitalization)
  Sender: FDA-Public Use
  Company Number: US-Eisai Medical Research-EC-2023-134883

PATIENT
  Age: 71 Year
  Sex: Male
  Weight: 92.9 kg

DRUGS (2)
  1. LENVATINIB [Suspect]
     Active Substance: LENVATINIB
     Indication: Neuroendocrine carcinoma of prostate
     Dosage: FREQUENCY UNKNOWN
     Route: 048
     Dates: start: 20230207, end: 20230216
  2. PEMBROLIZUMAB [Suspect]
     Active Substance: PEMBROLIZUMAB
     Indication: Neuroendocrine carcinoma of prostate
     Dosage: ROUTE AND FREQUENCY UNKNOWN
     Dates: start: 20230207, end: 20230207

REACTIONS (1)
  - Atrial flutter [Recovered/Resolved]

NARRATIVE: CASE EVENT DATE: 20230217
